FAERS Safety Report 9959485 (Version 2)
Quarter: 2014Q1

REPORT INFORMATION
  Report Type: Report from Study
  Country: US (occurrence: US)
  Receive Date: 20140305
  Receipt Date: 20140305
  Transmission Date: 20141002
  Serious: Yes (Other)
  Sender: FDA-Public Use
  Company Number: US-ABBVIE-13P-163-1100896-00

PATIENT
  Age: 68 Year
  Sex: Female

DRUGS (11)
  1. HUMIRA [Suspect]
     Indication: RHEUMATOID ARTHRITIS
     Dates: end: 201301
  2. HUMIRA [Suspect]
  3. NAPROXEN [Concomitant]
     Indication: PRODUCT USED FOR UNKNOWN INDICATION
  4. ARAVA [Concomitant]
     Indication: PRODUCT USED FOR UNKNOWN INDICATION
  5. COZAAR [Concomitant]
     Indication: BLOOD PRESSURE
     Dosage: 20 OR 40 MG PATIENT NOT SURE OF DOSE
  6. CYTOTEC [Concomitant]
     Indication: GASTRIC DISORDER
  7. NEXIUM [Concomitant]
     Indication: PRODUCT USED FOR UNKNOWN INDICATION
  8. NEURONTIN [Concomitant]
     Indication: PRODUCT USED FOR UNKNOWN INDICATION
  9. FISH OIL [Concomitant]
     Indication: CARDIAC DISORDER
  10. IRON [Concomitant]
     Indication: ANAEMIA
  11. VITAMIN B-12 [Concomitant]
     Indication: ANAEMIA
     Dosage: QOW

REACTIONS (3)
  - Localised infection [Not Recovered/Not Resolved]
  - Wound secretion [Not Recovered/Not Resolved]
  - Skin lesion [Not Recovered/Not Resolved]
